FAERS Safety Report 25509511 (Version 1)
Quarter: 2025Q3

REPORT INFORMATION
  Report Type: Spontaneous
  Country: EU (occurrence: EU)
  Receive Date: 20250703
  Receipt Date: 20250703
  Transmission Date: 20251021
  Serious: Yes (Other)
  Sender: AUROBINDO
  Company Number: EU-AUROBINDO-AUR-APL-2017-42226

PATIENT
  Age: 59 Year
  Sex: Male

DRUGS (22)
  1. LAMIVUDINE [Suspect]
     Active Substance: LAMIVUDINE
     Indication: Non-Hodgkin^s lymphoma stage IV
     Route: 065
     Dates: start: 2010, end: 201501
  2. LAMIVUDINE [Suspect]
     Active Substance: LAMIVUDINE
     Indication: Antiviral prophylaxis
  3. BENDAMUSTINE [Suspect]
     Active Substance: BENDAMUSTINE
     Indication: Non-Hodgkin^s lymphoma stage IV
     Route: 065
     Dates: start: 201005
  4. RITUXIMAB [Suspect]
     Active Substance: RITUXIMAB
     Indication: Non-Hodgkin^s lymphoma stage IV
     Route: 065
     Dates: start: 20111001
  5. CISPLATIN [Suspect]
     Active Substance: CISPLATIN
     Indication: Non-Hodgkin^s lymphoma stage IV
     Route: 065
     Dates: start: 20111001
  6. DEXAMETHASONE [Suspect]
     Active Substance: DEXAMETHASONE
     Indication: Non-Hodgkin^s lymphoma stage IV
     Route: 065
     Dates: start: 20111001
  7. FLUDARABINE [Suspect]
     Active Substance: FLUDARABINE PHOSPHATE
     Indication: Non-Hodgkin^s lymphoma stage IV
     Route: 065
  8. FLUDARABINE [Suspect]
     Active Substance: FLUDARABINE PHOSPHATE
     Indication: Bone marrow conditioning regimen
  9. METHOTREXATE [Suspect]
     Active Substance: METHOTREXATE
     Indication: Graft versus host disease
     Route: 065
  10. METHOTREXATE [Suspect]
     Active Substance: METHOTREXATE
     Indication: Prophylaxis against graft versus host disease
  11. TENOFOVIR [Suspect]
     Active Substance: TENOFOVIR
     Indication: Hepatitis B reactivation
     Dosage: 245 MILLIGRAM, ONCE A DAY
     Route: 065
  12. CYTARABINE [Suspect]
     Active Substance: CYTARABINE
     Indication: Non-Hodgkin^s lymphoma
     Route: 065
  13. CYCLOSPORINE [Suspect]
     Active Substance: CYCLOSPORINE
     Indication: Graft versus host disease
     Route: 065
  14. CYCLOSPORINE [Suspect]
     Active Substance: CYCLOSPORINE
     Indication: Prophylaxis against graft versus host disease
  15. LAPINE T-LYMPHOCYTE IMMUNE GLOBULIN [Suspect]
     Active Substance: LAPINE T-LYMPHOCYTE IMMUNE GLOBULIN
     Indication: Bone marrow conditioning regimen
     Route: 065
  16. CYTARABINE [Concomitant]
     Active Substance: CYTARABINE
     Indication: Non-Hodgkin^s lymphoma stage IV
     Route: 065
     Dates: start: 201110
  17. OFATUMUMAB [Concomitant]
     Active Substance: OFATUMUMAB
     Indication: Non-Hodgkin^s lymphoma stage IV
     Route: 065
     Dates: start: 201202
  18. OFATUMUMAB [Concomitant]
     Active Substance: OFATUMUMAB
     Indication: Non-Hodgkin^s lymphoma
  19. THIOTEPA [Concomitant]
     Active Substance: THIOTEPA
     Indication: Non-Hodgkin^s lymphoma stage IV
     Route: 065
  20. BUSULFAN [Concomitant]
     Active Substance: BUSULFAN
     Indication: Non-Hodgkin^s lymphoma stage IV
     Route: 065
  21. ALEMTUZUMAB [Concomitant]
     Active Substance: ALEMTUZUMAB
     Indication: Non-Hodgkin^s lymphoma
     Route: 065
     Dates: start: 20111001
  22. RITUXIMAB [Suspect]
     Active Substance: RITUXIMAB
     Indication: Non-Hodgkin^s lymphoma stage IV
     Route: 065
     Dates: start: 201005

REACTIONS (5)
  - Hepatitis B reactivation [Recovered/Resolved]
  - Therapeutic response decreased [Recovering/Resolving]
  - Osteopenia [Recovering/Resolving]
  - Nephropathy toxic [Recovering/Resolving]
  - Glomerular filtration rate decreased [Recovering/Resolving]
